FAERS Safety Report 13692506 (Version 6)
Quarter: 2017Q3

REPORT INFORMATION
  Report Type: Report from Study
  Country: None (occurrence: BE)
  Receive Date: 20170627
  Receipt Date: 20170727
  Transmission Date: 20171127
  Serious: Yes (Hospitalization)
  Sender: FDA-Public Use
  Company Number: BE-ABBVIE-17K-013-2015094-00

PATIENT
  Sex: Male

DRUGS (9)
  1. DUODOPA [Suspect]
     Active Substance: CARBIDOPA\LEVODOPA
     Indication: PARKINSON^S DISEASE
     Dosage: MD=10ML; CD= 3.1 ML/H DURING 16 HRS; EDA= 1.5 ML
     Route: 050
     Dates: start: 20170612, end: 20170615
  2. DUODOPA [Suspect]
     Active Substance: CARBIDOPA\LEVODOPA
     Dosage: MD: 1.5ML; CD: 3.4ML/H FOR 16HRS; EDA: 2.5ML/H FOR 8HRS; ND: 2ML
     Route: 050
     Dates: start: 20170628, end: 201706
  3. DUODOPA [Suspect]
     Active Substance: CARBIDOPA\LEVODOPA
     Dosage: MD= 12 ML; CD= 3.3 ML/H DURING 16 HRS; EDA= 2.5 ML
     Route: 050
     Dates: start: 20170615, end: 20170616
  4. DUODOPA [Suspect]
     Active Substance: CARBIDOPA\LEVODOPA
     Dosage: MD= 9.5 ML; CD= 3.4 ML/H DURING 16 HRS; EDA= 2.5 ML
     Route: 050
     Dates: start: 20170619, end: 20170628
  5. DUODOPA [Suspect]
     Active Substance: CARBIDOPA\LEVODOPA
     Dosage: MD=7ML?CD=3.4ML/HR DURING 16HRS?EDA=2.5ML
     Route: 050
     Dates: start: 20170718
  6. MIRAPEXIN [Concomitant]
     Active Substance: PRAMIPEXOLE
  7. DUODOPA [Suspect]
     Active Substance: CARBIDOPA\LEVODOPA
     Dosage: MD= 9.5 ML; CD= 3.4 ML/H DURING 16 HRS; EDA= 3.3 ML
     Route: 050
     Dates: start: 20170616, end: 20170619
  8. MIRAPEXIN [Concomitant]
     Active Substance: PRAMIPEXOLE
     Indication: PARKINSON^S DISEASE
     Route: 048
  9. DUODOPA [Suspect]
     Active Substance: CARBIDOPA\LEVODOPA
     Dosage: MD=1.5ML?CD=3.4ML/HR DURING 16HRS?EDA=2.5ML?ND= DECREASED
     Route: 050
     Dates: start: 201706, end: 20170718

REACTIONS (11)
  - Pyrexia [Unknown]
  - Somnolence [Unknown]
  - Freezing phenomenon [Unknown]
  - Malaise [Unknown]
  - Restless legs syndrome [Not Recovered/Not Resolved]
  - Gastroenteritis [Unknown]
  - Inflammation [Unknown]
  - Electrophoresis protein abnormal [Unknown]
  - Dyskinesia [Unknown]
  - Incorrect dose administered [Unknown]
  - Nausea [Unknown]

NARRATIVE: CASE EVENT DATE: 2017
